FAERS Safety Report 23606368 (Version 1)
Quarter: 2024Q1

REPORT INFORMATION
  Report Type: Spontaneous
  Country: US (occurrence: US)
  Receive Date: 20240307
  Receipt Date: 20240307
  Transmission Date: 20240409
  Serious: No
  Sender: FDA-Public Use
  Company Number: US-AMNEAL PHARMACEUTICALS-2024-AMRX-00639

PATIENT

DRUGS (2)
  1. RELEUKO [Suspect]
     Active Substance: FILGRASTIM-AYOW
     Indication: Product used for unknown indication
     Dosage: 300 MICROGRAM PER MILLILITRE
     Route: 065
  2. RELEUKO [Suspect]
     Active Substance: FILGRASTIM-AYOW
     Dosage: 480/1.6 MICROGRAM PER MILLILITRE
     Route: 065

REACTIONS (2)
  - Product barcode issue [Unknown]
  - No adverse event [Unknown]

NARRATIVE: CASE EVENT DATE: 20240125
